FAERS Safety Report 10178099 (Version 2)
Quarter: 2014Q3

REPORT INFORMATION
  Report Type: Spontaneous
  Country: US (occurrence: US)
  Receive Date: 20140519
  Receipt Date: 20140721
  Transmission Date: 20150326
  Serious: Yes (Other)
  Sender: FDA-Public Use
  Company Number: US-AMGEN INC.-USASP2014035981

PATIENT
  Age: 51 Year
  Sex: Male

DRUGS (1)
  1. EPOGEN [Suspect]
     Active Substance: ERYTHROPOIETIN
     Indication: NEPHROGENIC ANAEMIA
     Dosage: 20000 UNIT, QWK
     Route: 065

REACTIONS (4)
  - Haemoglobin abnormal [Not Recovered/Not Resolved]
  - Pain [Unknown]
  - Therapeutic response decreased [Unknown]
  - Convulsion [Unknown]

NARRATIVE: CASE EVENT DATE: 2014
